FAERS Safety Report 5082168-X (Version None)
Quarter: 2006Q3

REPORT INFORMATION
  Report Type: 
  Country: None (occurrence: None)
  Receive Date: 20060815
  Receipt Date: 20060815
  Transmission Date: 20061208
  Serious: Yes (Hospitalization)
  Sender: FDA-Public Use
  Company Number: None

PATIENT
  Age: 69 Year
  Sex: Male
  Weight: 102.3 kg

DRUGS (2)
  1. GOLYTELY [Suspect]
     Indication: COLONOSCOPY
     Dosage: 1 GALLON ONCE PO
     Route: 048
  2. GOLYTELY [Suspect]
     Indication: PREOPERATIVE CARE
     Dosage: 1 GALLON ONCE PO
     Route: 048

REACTIONS (5)
  - ABDOMINAL PAIN [None]
  - ASTHENIA [None]
  - INTERNATIONAL NORMALISED RATIO DECREASED [None]
  - RENAL FAILURE ACUTE [None]
  - URINARY TRACT INFECTION [None]
